FAERS Safety Report 10199664 (Version 3)
Quarter: 2014Q2

REPORT INFORMATION
  Report Type: Report from Study
  Country: US (occurrence: US)
  Receive Date: 20140527
  Receipt Date: 20140609
  Transmission Date: 20141212
  Serious: Yes (Disabling)
  Sender: FDA-Public Use
  Company Number: US-SANOFI-AVENTIS-2013SA004401

PATIENT
  Age: 53 Year
  Sex: Male

DRUGS (1)
  1. AUBAGIO [Suspect]
     Indication: MULTIPLE SCLEROSIS
     Route: 048
     Dates: start: 20140407

REACTIONS (9)
  - Joint range of motion decreased [Recovering/Resolving]
  - Gait disturbance [Recovering/Resolving]
  - Feeling hot [Unknown]
  - Diarrhoea [Recovered/Resolved]
  - Hypoaesthesia [Unknown]
  - Multiple sclerosis relapse [Unknown]
  - Dysarthria [Recovering/Resolving]
  - Dysphemia [Recovering/Resolving]
  - Gait disturbance [Recovering/Resolving]
